FAERS Safety Report 6955064-8 (Version None)
Quarter: 2010Q3

REPORT INFORMATION
  Report Type: 
  Country: None (occurrence: None)
  Receive Date: 20100830
  Receipt Date: 20100824
  Transmission Date: 20110219
  Serious: Yes (Life-Threatening)
  Sender: FDA-Public Use
  Company Number: FR-ASTRAZENECA-2010SE37818

PATIENT
  Age: 15424 Day
  Sex: Female

DRUGS (13)
  1. DIPRIVAN [Suspect]
     Indication: ANAESTHESIA
     Route: 042
     Dates: start: 20100727, end: 20100727
  2. SEVOFLURANE [Suspect]
     Indication: ANAESTHESIA
     Route: 055
     Dates: start: 20100727, end: 20100727
  3. ALFENTANIL [Suspect]
     Indication: ANAESTHESIA
     Route: 042
     Dates: start: 20100727, end: 20100727
  4. LYRICA [Concomitant]
  5. VENLAFAXINE [Concomitant]
  6. BIPERIDYS [Concomitant]
  7. METEOXANE [Concomitant]
  8. AERIUS [Concomitant]
  9. FLURBIPROFEN [Concomitant]
  10. DIPROSONE [Concomitant]
  11. PLAQUENIL [Concomitant]
     Dates: end: 20100601
  12. ATARAX [Concomitant]
     Dates: start: 20100727
  13. XANAX [Concomitant]
     Dates: start: 20100727

REACTIONS (1)
  - ANAPHYLACTIC SHOCK [None]
